FAERS Safety Report 8350839-5 (Version None)
Quarter: 2012Q2

REPORT INFORMATION
  Report Type: 
  Country: None (occurrence: None)
  Receive Date: 20120510
  Receipt Date: 20120509
  Transmission Date: 20120825
  Serious: Yes (Hospitalization, Other)
  Sender: FDA-Public Use
  Company Number: US-BAYER-2012-036966

PATIENT

DRUGS (1)
  1. MAGNEVIST [Suspect]
     Dosage: UNK UNK, ONCE

REACTIONS (5)
  - CHEST DISCOMFORT [None]
  - DRY MOUTH [None]
  - CARDIAC ARREST [None]
  - DYSPNOEA [None]
  - URTICARIA [None]
